FAERS Safety Report 6952657-9 (Version None)
Quarter: 2010Q3

REPORT INFORMATION
  Report Type: 
  Country: None (occurrence: None)
  Receive Date: 20100829
  Receipt Date: 20100511
  Transmission Date: 20110219
  Serious: No
  Sender: FDA-Public Use
  Company Number: US-ABBOTT-10P-163-0644218-00

PATIENT
  Sex: Female

DRUGS (1)
  1. NIASPAN [Suspect]
     Indication: BLOOD CHOLESTEROL INCREASED
     Dates: start: 20100503, end: 20100509

REACTIONS (5)
  - DIZZINESS [None]
  - FEELING HOT [None]
  - HEADACHE [None]
  - PARAESTHESIA [None]
  - VOMITING [None]
